FAERS Safety Report 4720882-3 (Version None)
Quarter: 2005Q3

REPORT INFORMATION
  Report Type: 
  Country: None (occurrence: None)
  Receive Date: 20050720
  Receipt Date: 20050711
  Transmission Date: 20060218
  Serious: Yes (Hospitalization)
  Sender: FDA-Public Use
  Company Number: TCI2005A03173

PATIENT

DRUGS (3)
  1. ACTOS [Suspect]
     Indication: DIABETES MELLITUS
     Dosage: PER ORAL
     Route: 048
  2. RABEPRAZOLE SODIUM [Suspect]
     Dosage: PER ORAL
     Route: 048
  3. SHOUKENCHUUTOU (SHOUKENCHUUTOU) [Suspect]
     Dosage: PER ORAL
     Route: 048

REACTIONS (1)
  - INTERSTITIAL LUNG DISEASE [None]
